FAERS Safety Report 6160189-3 (Version None)
Quarter: 2009Q2

REPORT INFORMATION
  Report Type: 
  Country: None (occurrence: None)
  Receive Date: 20090420
  Receipt Date: 20090410
  Transmission Date: 20091009
  Serious: Yes (Death)
  Sender: FDA-Public Use
  Company Number: A0779272A

PATIENT
  Age: 66 Year
  Sex: Female
  Weight: 72.7 kg

DRUGS (3)
  1. AVANDIA [Suspect]
     Dosage: 8MG PER DAY
     Route: 048
     Dates: start: 20010101, end: 20020101
  2. METFORMIN HCL [Concomitant]
     Dates: start: 19900101, end: 20020101
  3. GLUCOPHAGE [Concomitant]
     Dates: start: 19900101, end: 20020101

REACTIONS (2)
  - CEREBROVASCULAR ACCIDENT [None]
  - RENAL FAILURE [None]
